FAERS Safety Report 4873881-5 (Version None)
Quarter: 2006Q1

REPORT INFORMATION
  Report Type: 
  Country: None (occurrence: None)
  Receive Date: 20060104
  Receipt Date: 20051222
  Transmission Date: 20060701
  Serious: Yes (Hospitalization, Disabling, Other)
  Sender: FDA-Public Use
  Company Number: 2014034

PATIENT
  Age: 25 Year
  Sex: Female
  Weight: 49.9 kg

DRUGS (16)
  1. OXYCONTIN [Suspect]
     Indication: PAIN
     Dosage: 40 MG, BID, ORAL
     Route: 048
     Dates: start: 20000301
  2. MS CONTIN [Suspect]
     Indication: PAIN
     Dosage: 15 MG, BID, ORAL
     Route: 048
     Dates: start: 20010101, end: 20020101
  3. MORPHINE SULFATE [Suspect]
     Indication: PAIN
     Dosage: 30 MG, BID, ORAL
     Route: 048
     Dates: start: 20020123
  4. XANAX [Suspect]
     Indication: PAIN
     Dosage: 2 MG, BID, ORAL
     Route: 048
  5. COCAINE (COCAINE) [Suspect]
  6. FIORCET ( BUTALBITAL) [Concomitant]
  7. SOMA [Concomitant]
  8. DEPO-PROVERA SUSPENSION/INJ [Concomitant]
  9. PERCOCET [Concomitant]
  10. LORCET-HD [Concomitant]
  11. BENTYL (CLARITHROMYCIN) [Concomitant]
  12. HUMIBID DM [Concomitant]
  13. PHENERGAN [Concomitant]
  14. AMITRIPTYLINE HCL [Concomitant]
  15. CLINDAMYCIN [Concomitant]
  16. CLONIDINE [Concomitant]

REACTIONS (28)
  - ABDOMINAL PAIN [None]
  - AMNESIA [None]
  - ANOREXIA [None]
  - ANXIETY [None]
  - BACK PAIN [None]
  - BRONCHITIS [None]
  - DEPRESSION [None]
  - DIARRHOEA [None]
  - DRUG ABUSER [None]
  - DRUG DEPENDENCE [None]
  - DRUG WITHDRAWAL SYNDROME [None]
  - DYSKINESIA [None]
  - FORMICATION [None]
  - GOITRE [None]
  - HALLUCINATION [None]
  - LIBIDO DECREASED [None]
  - MUSCLE SPASMS [None]
  - NAUSEA [None]
  - PAIN [None]
  - POLYSUBSTANCE ABUSE [None]
  - POLYSUBSTANCE DEPENDENCE [None]
  - RENAL COLIC [None]
  - SLEEP DISORDER [None]
  - THINKING ABNORMAL [None]
  - TOOTH DISORDER [None]
  - TREATMENT NONCOMPLIANCE [None]
  - UPPER RESPIRATORY TRACT INFECTION [None]
  - WEIGHT DECREASED [None]
